FAERS Safety Report 9630770 (Version 2)
Quarter: 2013Q4

REPORT INFORMATION
  Report Type: Report from Study
  Country: GB (occurrence: GB)
  Receive Date: 20131018
  Receipt Date: 20131111
  Transmission Date: 20140711
  Serious: Yes (Hospitalization)
  Sender: FDA-Public Use
  Company Number: GB-JNJFOC-20131007991

PATIENT
  Age: 18 Year
  Sex: Female
  Weight: 53 kg

DRUGS (7)
  1. REMICADE [Suspect]
     Indication: CROHN^S DISEASE
     Route: 042
     Dates: start: 20081208
  2. HUMIRA [Concomitant]
     Route: 065
     Dates: start: 20091002
  3. AZATHIOPRINE [Concomitant]
     Route: 065
  4. OMEPRAZOLE [Concomitant]
     Route: 065
  5. COLESEVELAM [Concomitant]
     Route: 065
  6. CALCICHEW [Concomitant]
     Route: 065
  7. MODULEN [Concomitant]
     Route: 065

REACTIONS (1)
  - Migraine [Recovered/Resolved]
